FAERS Safety Report 11418760 (Version 10)
Quarter: 2016Q3

REPORT INFORMATION
  Report Type: Report from Study
  Country: CA (occurrence: CA)
  Receive Date: 20150826
  Receipt Date: 20160901
  Transmission Date: 20161109
  Serious: Yes (Other)
  Sender: FDA-Public Use
  Company Number: CA-ROCHE-1624322

PATIENT
  Age: 33 Year
  Sex: Female
  Weight: 45 kg

DRUGS (12)
  1. XELODA [Suspect]
     Active Substance: CAPECITABINE
     Indication: BREAST CANCER
     Route: 065
  2. HERCEPTIN [Suspect]
     Active Substance: TRASTUZUMAB
     Route: 042
     Dates: start: 20151001
  3. TYKERB [Suspect]
     Active Substance: LAPATINIB DITOSYLATE
     Indication: PRODUCT USED FOR UNKNOWN INDICATION
     Route: 065
  4. CISPLATIN. [Concomitant]
     Active Substance: CISPLATIN
  5. CYCLOPHOSPHAMIDE. [Concomitant]
     Active Substance: CYCLOPHOSPHAMIDE
  6. HERCEPTIN [Suspect]
     Active Substance: TRASTUZUMAB
     Indication: BREAST CANCER
     Route: 042
     Dates: start: 20100505, end: 20160128
  7. HERCEPTIN [Suspect]
     Active Substance: TRASTUZUMAB
     Route: 042
     Dates: start: 20151022
  8. DOXORUBICIN [Concomitant]
     Active Substance: DOXORUBICIN
  9. XGEVA [Suspect]
     Active Substance: DENOSUMAB
     Indication: PRODUCT USED FOR UNKNOWN INDICATION
     Route: 065
  10. EPIRUBICIN [Concomitant]
     Active Substance: EPIRUBICIN
  11. HERCEPTIN [Suspect]
     Active Substance: TRASTUZUMAB
     Route: 042
     Dates: start: 20160111
  12. PACLITAXEL. [Suspect]
     Active Substance: PACLITAXEL
     Indication: PRODUCT USED FOR UNKNOWN INDICATION
     Route: 065

REACTIONS (18)
  - Weight decreased [Unknown]
  - Nerve compression [Not Recovered/Not Resolved]
  - Injection site pain [Unknown]
  - Back pain [Not Recovered/Not Resolved]
  - Pulmonary oedema [Unknown]
  - Thrombosis in device [Recovered/Resolved]
  - Muscle spasms [Recovering/Resolving]
  - Cough [Recovering/Resolving]
  - Chills [Recovering/Resolving]
  - Malaise [Recovering/Resolving]
  - Rash [Recovering/Resolving]
  - Dyspnoea [Unknown]
  - Sleep disorder [Unknown]
  - Breast cancer metastatic [Unknown]
  - Stomatitis [Not Recovered/Not Resolved]
  - Eczema [Not Recovered/Not Resolved]
  - Nasopharyngitis [Recovered/Resolved]
  - Vomiting [Not Recovered/Not Resolved]

NARRATIVE: CASE EVENT DATE: 20150910
